FAERS Safety Report 20630499 (Version 1)
Quarter: 2022Q1

REPORT INFORMATION
  Report Type: Spontaneous
  Country: DE (occurrence: DE)
  Receive Date: 20220324
  Receipt Date: 20220324
  Transmission Date: 20220423
  Serious: Yes (Other)
  Sender: FDA-Public Use
  Company Number: DE-AMGEN-DEUSP2022048264

PATIENT

DRUGS (1)
  1. FILGRASTIM [Suspect]
     Active Substance: FILGRASTIM
     Indication: Prophylaxis
     Dosage: UNK
     Route: 065

REACTIONS (20)
  - Hepatotoxicity [Recovered/Resolved]
  - Pulmonary toxicity [Recovered/Resolved]
  - Metastases to central nervous system [Unknown]
  - Breast cancer metastatic [Unknown]
  - Vomiting [Recovered/Resolved]
  - Nausea [Recovered/Resolved]
  - Chills [Recovered/Resolved]
  - Tumour pain [Recovered/Resolved]
  - Monocyte count decreased [Unknown]
  - Granulocytosis [Unknown]
  - Cancer pain [Recovered/Resolved]
  - Lymphocyte count decreased [Unknown]
  - Emotional disorder [Recovered/Resolved]
  - Tachycardia [Recovered/Resolved]
  - Gamma-glutamyltransferase increased [Recovered/Resolved]
  - Hypotension [Recovered/Resolved]
  - Pyrexia [Recovered/Resolved]
  - Diarrhoea [Recovered/Resolved]
  - Blood alkaline phosphatase increased [Recovered/Resolved]
  - Erythema [Unknown]
